FAERS Safety Report 5926895-8 (Version None)
Quarter: 2008Q4

REPORT INFORMATION
  Report Type: 
  Country: None (occurrence: None)
  Receive Date: 20081017
  Receipt Date: 20081010
  Transmission Date: 20090506
  Serious: Yes (Hospitalization)
  Sender: FDA-Public Use
  Company Number: 2008AL011149

PATIENT
  Age: 73 Year
  Sex: Female
  Weight: 87.9978 kg

DRUGS (1)
  1. DIGOXIN [Suspect]
     Indication: ATRIAL FIBRILLATION
     Dosage: 0.125MG, DAILY, PO; MONTHS
     Route: 048

REACTIONS (3)
  - CARDIOACTIVE DRUG LEVEL [None]
  - NAUSEA [None]
  - VOMITING [None]
